FAERS Safety Report 20719534 (Version 1)
Quarter: 2022Q2

REPORT INFORMATION
  Report Type: Spontaneous
  Country: US (occurrence: US)
  Receive Date: 20220418
  Receipt Date: 20220418
  Transmission Date: 20220721
  Serious: No
  Sender: FDA-Public Use
  Company Number: US-PERRIGO-21US004851

PATIENT
  Age: 19 Year
  Sex: Female

DRUGS (1)
  1. DEXTROMETHORPHAN HYDROBROMIDE\GUAIFENESIN [Suspect]
     Active Substance: DEXTROMETHORPHAN HYDROBROMIDE\GUAIFENESIN
     Indication: Product used for unknown indication
     Dosage: 1 TABLET, SINGLE
     Route: 048
     Dates: start: 202104, end: 202104

REACTIONS (2)
  - Feeling jittery [Unknown]
  - Malaise [Unknown]

NARRATIVE: CASE EVENT DATE: 20210401
